FAERS Safety Report 24860107 (Version 1)
Quarter: 2025Q1

REPORT INFORMATION
  Report Type: Spontaneous
  Country: US (occurrence: US)
  Receive Date: 20250120
  Receipt Date: 20250120
  Transmission Date: 20250408
  Serious: No
  Sender: AMGEN
  Company Number: US-AMGEN-USASP2025005824

PATIENT
  Age: 6 Year
  Sex: Female

DRUGS (5)
  1. NPLATE [Suspect]
     Active Substance: ROMIPLOSTIM
     Indication: Immune thrombocytopenia
     Route: 065
  2. NPLATE [Suspect]
     Active Substance: ROMIPLOSTIM
     Indication: Thrombocytopenia
     Dosage: UNK UNK, QWK (3-4 MCG/KG PER WEEK)
     Route: 065
     Dates: start: 2024, end: 2024
  3. NPLATE [Suspect]
     Active Substance: ROMIPLOSTIM
     Route: 065
     Dates: start: 202411
  4. NPLATE [Suspect]
     Active Substance: ROMIPLOSTIM
     Dosage: 10 MICROGRAM/KILOGRAM, QWK
     Route: 065
  5. ACYCLOVIR [Concomitant]
     Active Substance: ACYCLOVIR
     Indication: Prophylaxis

REACTIONS (1)
  - Therapeutic response decreased [Not Recovered/Not Resolved]
